FAERS Safety Report 22087429 (Version 2)
Quarter: 2025Q3

REPORT INFORMATION
  Report Type: Spontaneous
  Country: EU (occurrence: EU)
  Receive Date: 20230313
  Receipt Date: 20250729
  Transmission Date: 20251020
  Serious: Yes (Death)
  Sender: AUROBINDO
  Company Number: EU-SUBSTIPHV-202302838

PATIENT
  Age: 60 Year
  Sex: Female

DRUGS (4)
  1. SPIRONOLACTONE [Suspect]
     Active Substance: SPIRONOLACTONE
     Indication: Hypokalaemia
     Route: 048
     Dates: start: 2021
  2. AMILORIDE [Suspect]
     Active Substance: AMILORIDE
     Indication: Hypokalaemia
     Route: 065
     Dates: start: 2021
  3. CANRENOATE POTASSIUM [Suspect]
     Active Substance: CANRENOATE POTASSIUM
     Indication: Hypokalaemia
     Route: 042
     Dates: start: 2021
  4. OSILODROSTAT [Concomitant]
     Active Substance: OSILODROSTAT
     Indication: Hyperadrenocorticism
     Route: 065
     Dates: start: 202107

REACTIONS (2)
  - General physical health deterioration [Fatal]
  - Treatment failure [Fatal]

NARRATIVE: CASE EVENT DATE: 20210101
